FAERS Safety Report 8401209-2 (Version None)
Quarter: 2012Q2

REPORT INFORMATION
  Report Type: 
  Country: None (occurrence: None)
  Receive Date: 20120601
  Receipt Date: 20120525
  Transmission Date: 20120825
  Serious: Yes (Hospitalization)
  Sender: FDA-Public Use
  Company Number: PHHY2011AU04362

PATIENT
  Sex: Female

DRUGS (1)
  1. CLOZARIL [Suspect]
     Dosage: 12.5 MG DAILY
     Route: 048
     Dates: start: 20021011, end: 20120515

REACTIONS (2)
  - SCHIZOPHRENIA [None]
  - MENTAL IMPAIRMENT [None]
